FAERS Safety Report 6417986-6 (Version None)
Quarter: 2009Q4

REPORT INFORMATION
  Report Type: 
  Country: None (occurrence: None)
  Receive Date: 20091028
  Receipt Date: 20091020
  Transmission Date: 20100525
  Serious: Yes (Death)
  Sender: FDA-Public Use
  Company Number: GB-NAPPMUNDI-GBR-2009-0005521

PATIENT
  Sex: Male
  Weight: 85 kg

DRUGS (8)
  1. OXYCODONE HCL [Suspect]
     Indication: DRUG USE FOR UNKNOWN INDICATION
     Route: 065
  2. ETHANOL [Suspect]
     Indication: DRUG USE FOR UNKNOWN INDICATION
     Route: 065
  3. ZOPICLONE [Suspect]
     Indication: DEPRESSION
     Route: 065
  4. NICOTINE [Concomitant]
     Indication: NICOTINE DEPENDENCE
     Route: 048
  5. MORPHINE [Concomitant]
     Dosage: UNK
     Route: 065
  6. ACETAMINOPHEN [Concomitant]
  7. FLUOXETINE [Concomitant]
  8. QUININE [Concomitant]

REACTIONS (1)
  - MULTIPLE DRUG OVERDOSE INTENTIONAL [None]
